FAERS Safety Report 7875449-5 (Version None)
Quarter: 2011Q4

REPORT INFORMATION
  Report Type: 
  Country: None (occurrence: None)
  Receive Date: 20111031
  Receipt Date: 20111019
  Transmission Date: 20120403
  Serious: Yes (Hospitalization, Other)
  Sender: FDA-Public Use
  Company Number: PHHY2011JP92914

PATIENT
  Age: 71 Year
  Sex: Female

DRUGS (12)
  1. MYONAL [Concomitant]
     Indication: SPINAL OSTEOARTHRITIS
     Dosage: 3 DF, UNK
     Route: 048
     Dates: start: 20110303
  2. SITAGLIPTIN PHOSPHATE [Concomitant]
     Dosage: 25 MG, UNK
     Route: 048
     Dates: start: 20110812, end: 20110823
  3. AMLODIPINE [Concomitant]
     Indication: HYPERTENSION
     Dosage: 2.5 MG, UNK
     Route: 048
     Dates: start: 20110209
  4. MAGMITT [Concomitant]
     Dosage: UNK
     Dates: start: 20110219
  5. AMARYL [Concomitant]
     Dosage: 0.5 MG, UNK
     Route: 048
     Dates: start: 20110823, end: 20110830
  6. METHYCOBAL [Concomitant]
     Indication: SPINAL OSTEOARTHRITIS
     Dosage: 3 DF, UNK
     Route: 048
     Dates: start: 20110303
  7. CRESTOR [Concomitant]
     Indication: DYSLIPIDAEMIA
     Dosage: 2.5 MG, UNK
     Route: 048
     Dates: start: 20110812
  8. KAKKON-TO [Concomitant]
     Dosage: UNK
     Route: 048
     Dates: start: 20110219
  9. CELECOXIB [Concomitant]
     Indication: SPINAL OSTEOARTHRITIS
     Dosage: 2 DF, UNK
     Route: 048
     Dates: start: 20110303
  10. MUCOSTA [Concomitant]
     Indication: SPINAL OSTEOARTHRITIS
     Dosage: 2 DF, UNK
     Dates: start: 20110303
  11. DIOVAN [Suspect]
     Indication: HYPERTENSION
     Dosage: 80 MG, DAILY
     Route: 048
     Dates: start: 20110823
  12. AMLODIPINE [Concomitant]
     Dosage: 5 MG, UNK
     Route: 048
     Dates: end: 20110907

REACTIONS (9)
  - BLOOD PRESSURE SYSTOLIC INCREASED [None]
  - COLD SWEAT [None]
  - HYPOAESTHESIA [None]
  - CERVICAL SPINAL STENOSIS [None]
  - BLOOD GLUCOSE INCREASED [None]
  - MENOPAUSAL SYMPTOMS [None]
  - CEREBRAL INFARCTION [None]
  - HYPOGLYCAEMIA [None]
  - HUNGER [None]
